FAERS Safety Report 7444722-7 (Version None)
Quarter: 2011Q2

REPORT INFORMATION
  Report Type: 
  Country: None (occurrence: None)
  Receive Date: 20110429
  Receipt Date: 20110422
  Transmission Date: 20111010
  Serious: Yes (Other)
  Sender: FDA-Public Use
  Company Number: IE-PFIZER INC-2011088319

PATIENT
  Age: 9 Year
  Sex: Male

DRUGS (2)
  1. BENEFIX [Suspect]
     Dosage: 1000 IU, UNK
  2. BENEFIX [Suspect]
     Dosage: 1000 IU, UNK

REACTIONS (1)
  - URTICARIA [None]
